FAERS Safety Report 9856363 (Version 1)
Quarter: 2014Q1

REPORT INFORMATION
  Report Type: Spontaneous
  Country: BR (occurrence: BR)
  Receive Date: 20140130
  Receipt Date: 20140130
  Transmission Date: 20141002
  Serious: Yes (Other)
  Sender: FDA-Public Use
  Company Number: BR-BRISTOL-MYERS SQUIBB COMPANY-20076576

PATIENT
  Age: 57 Year
  Sex: Male
  Weight: 81 kg

DRUGS (5)
  1. BYETTA PEN DISPOSABLE [Suspect]
     Indication: TYPE 2 DIABETES MELLITUS
     Dosage: 10MCG BID
     Route: 058
     Dates: start: 201308
  2. PANTOPRAZOLE [Concomitant]
     Indication: HIATUS HERNIA
     Route: 048
  3. FENOFIBRATE [Concomitant]
     Indication: BLOOD TRIGLYCERIDES INCREASED
     Route: 048
  4. GINSENG [Concomitant]
  5. VITAMIN A [Concomitant]
     Indication: VISUAL IMPAIRMENT
     Dosage: 1DF: 1TAB
     Route: 048

REACTIONS (6)
  - Osteoarthritis [Unknown]
  - Dyspepsia [Unknown]
  - Constipation [Unknown]
  - Nausea [Unknown]
  - Decreased appetite [Unknown]
  - Incorrect product storage [Unknown]
